FAERS Safety Report 17359066 (Version 1)
Quarter: 2020Q1

REPORT INFORMATION
  Report Type: Spontaneous
  Country: NL (occurrence: NL)
  Receive Date: 20200202
  Receipt Date: 20200202
  Transmission Date: 20200409
  Serious: Yes (Other)
  Sender: FDA-Public Use
  Company Number: NL-TEVA-2020-NL-1177827

PATIENT
  Sex: Female

DRUGS (2)
  1. METHYLFENIDAAT [Suspect]
     Active Substance: METHYLPHENIDATE HYDROCHLORIDE
     Indication: ATTENTION DEFICIT/HYPERACTIVITY DISORDER
     Dosage: 10 MG (MILLIGRAM), 2 TIMES A DAY, 1
     Dates: start: 20191220, end: 20200102
  2. LAMOTRIGINE. [Concomitant]
     Active Substance: LAMOTRIGINE
     Indication: EPILEPSY
     Dates: start: 20191128

REACTIONS (1)
  - Epilepsy [Recovered/Resolved]
